FAERS Safety Report 6440911-9 (Version None)
Quarter: 2009Q4

REPORT INFORMATION
  Report Type: 
  Country: None (occurrence: None)
  Receive Date: 20091116
  Receipt Date: 20091111
  Transmission Date: 20100525
  Serious: Yes (Death, Hospitalization)
  Sender: FDA-Public Use
  Company Number: US-BRISTOL-MYERS SQUIBB COMPANY-14852636

PATIENT
  Age: 59 Year
  Sex: Female
  Weight: 40 kg

DRUGS (11)
  1. CISPLATIN [Suspect]
     Indication: PHARYNGEAL CANCER STAGE UNSPECIFIED
     Dates: start: 20080310, end: 20080407
  2. ERBITUX [Suspect]
     Indication: PHARYNGEAL CANCER STAGE UNSPECIFIED
     Dates: start: 20080310, end: 20080415
  3. RADIATION THERAPY [Suspect]
     Indication: PHARYNGEAL CANCER STAGE UNSPECIFIED
     Dosage: DF=  GY. NO OF FRACTIONS: 35. NO OF ELASPSED DAYS: 40
     Dates: start: 20080425
  4. ELTROXIN [Concomitant]
  5. GABAPENTIN [Concomitant]
  6. HYDROMORPHONE [Concomitant]
  7. IRON [Concomitant]
  8. LIPITOR [Concomitant]
  9. LORAZEPAM [Concomitant]
  10. SCOPOLAMINE [Concomitant]
  11. VITAMIN D [Concomitant]

REACTIONS (1)
  - DEATH [None]
